FAERS Safety Report 6819248-1 (Version None)
Quarter: 2010Q3

REPORT INFORMATION
  Report Type: 
  Country: None (occurrence: None)
  Receive Date: 20100707
  Receipt Date: 20100629
  Transmission Date: 20110219
  Serious: Yes (Other)
  Sender: FDA-Public Use
  Company Number: US-BAYER-201017418BCC

PATIENT
  Age: 78 Year
  Sex: Female
  Weight: 61 kg

DRUGS (6)
  1. ALEVE (CAPLET) [Suspect]
     Indication: BACK PAIN
     Dosage: TOTAL DAILY DOSE: 440 MG  UNIT DOSE: 220 MG
     Route: 048
     Dates: start: 20100628
  2. SIMVASTATIN [Concomitant]
     Route: 065
  3. TOPIRAMATE [Concomitant]
     Route: 065
  4. PROPRANOLOL [Concomitant]
     Route: 065
  5. DILTIAZEM [Concomitant]
     Route: 065
  6. AMITRIPTYLINE HCL [Concomitant]
     Route: 065

REACTIONS (7)
  - DYSPHAGIA [None]
  - DYSPNOEA [None]
  - FEELING ABNORMAL [None]
  - HYPERSENSITIVITY [None]
  - PRURITUS [None]
  - RASH MACULAR [None]
  - SWELLING [None]
